FAERS Safety Report 5846788-4 (Version None)
Quarter: 2008Q3

REPORT INFORMATION
  Report Type: 
  Country: None (occurrence: None)
  Receive Date: 20080815
  Receipt Date: 20080806
  Transmission Date: 20090109
  Serious: Yes (Life-Threatening, Hospitalization, Other)
  Sender: FDA-Public Use
  Company Number: US-MERCK-0807USA05339

PATIENT
  Age: 15 Year
  Sex: Male

DRUGS (2)
  1. SINGULAIR [Suspect]
     Indication: HYPERSENSITIVITY
     Route: 048
     Dates: start: 20080324
  2. ALBUTEROL [Concomitant]
     Route: 065

REACTIONS (2)
  - AGGRESSION [None]
  - DEPRESSION [None]
